FAERS Safety Report 22144006 (Version 1)
Quarter: 2023Q1

REPORT INFORMATION
  Report Type: Spontaneous
  Country: FI (occurrence: FI)
  Receive Date: 20230327
  Receipt Date: 20230327
  Transmission Date: 20230417
  Serious: Yes (Death, Other)
  Sender: FDA-Public Use
  Company Number: None

PATIENT
  Age: 69 Year
  Sex: Male

DRUGS (2)
  1. YERVOY [Suspect]
     Active Substance: IPILIMUMAB
     Indication: Melanoma recurrent
     Dates: start: 20221209
  2. OPDIVO [Suspect]
     Active Substance: NIVOLUMAB
     Indication: Melanoma recurrent
     Dates: start: 20221209

REACTIONS (3)
  - Arrhythmia [Fatal]
  - Cardiac failure [Fatal]
  - Myocarditis [Fatal]

NARRATIVE: CASE EVENT DATE: 20221201
